FAERS Safety Report 9661538 (Version 4)
Quarter: 2024Q4

REPORT INFORMATION
  Report Type: Spontaneous
  Country: CA (occurrence: US)
  Receive Date: 20131031
  Receipt Date: 20241004
  Transmission Date: 20250115
  Serious: Yes (Death, Hospitalization, Other)
  Sender: PURDUE
  Company Number: US-NAPPMUNDI-USA-2010-0054992

PATIENT
  Age: 39 Year
  Sex: Male

DRUGS (3)
  1. OXYCONTIN [Suspect]
     Active Substance: OXYCODONE HYDROCHLORIDE
     Indication: Substance abuse
     Dosage: UNK
     Route: 048
  2. OXYCODONE HYDROCHLORIDE [Suspect]
     Active Substance: OXYCODONE HYDROCHLORIDE
     Indication: Product used for unknown indication
     Dosage: UNK
     Route: 048
  3. COCAINE [Suspect]
     Active Substance: COCAINE
     Indication: Substance abuse
     Dosage: UNK
     Route: 065

REACTIONS (8)
  - Myocardial infarction [Fatal]
  - Respiratory failure [Fatal]
  - Brain death [Fatal]
  - Overdose [Fatal]
  - Unresponsive to stimuli [Unknown]
  - Substance abuse [Unknown]
  - Drug dependence [Unknown]
  - Asthma [Unknown]

NARRATIVE: CASE EVENT DATE: 20160210
